FAERS Safety Report 13462103 (Version 1)
Quarter: 2017Q2

REPORT INFORMATION
  Report Type: Not Available
  Country: None (occurrence: US)
  Receive Date: 20170420
  Receipt Date: 20170420
  Transmission Date: 20170830
  Serious: No
  Sender: FDA-Public Use
  Company Number: US-AKORN-50020

PATIENT
  Sex: Female

DRUGS (1)
  1. LATANOPROST. [Suspect]
     Active Substance: LATANOPROST

REACTIONS (4)
  - Foreign body sensation in eyes [Unknown]
  - Eye irritation [Unknown]
  - Eye pruritus [Unknown]
  - Vision blurred [Unknown]
